FAERS Safety Report 18338499 (Version 1)
Quarter: 2020Q4

REPORT INFORMATION
  Report Type: Spontaneous
  Country: FR (occurrence: FR)
  Receive Date: 20201002
  Receipt Date: 20201002
  Transmission Date: 20210113
  Serious: Yes (Hospitalization)
  Sender: FDA-Public Use
  Company Number: FR-MYLANLABS-2020M1082696

PATIENT
  Age: 12 Year
  Sex: Male
  Weight: 42 kg

DRUGS (2)
  1. METHOTREXATE. [Suspect]
     Active Substance: METHOTREXATE
     Indication: OSTEOSARCOMA
     Dosage: 16.1 GRAMMES RECUS LE 09/06/2020
     Route: 041
     Dates: start: 20191107, end: 20200609
  2. HOLOXAN [Suspect]
     Active Substance: IFOSFAMIDE
     Indication: OSTEOSARCOMA
     Dosage: 4 GRAMMES LE 16 JUIN 2020
     Route: 041
     Dates: start: 20191129, end: 20200616

REACTIONS (2)
  - Central nervous system necrosis [Not Recovered/Not Resolved]
  - Leukoencephalopathy [Recovered/Resolved with Sequelae]

NARRATIVE: CASE EVENT DATE: 20200616
